FAERS Safety Report 20975031 (Version 5)
Quarter: 2023Q2

REPORT INFORMATION
  Report Type: Report from Study
  Country: EG (occurrence: EG)
  Receive Date: 20220617
  Receipt Date: 20230529
  Transmission Date: 20230722
  Serious: Yes (Hospitalization, Other)
  Sender: FDA-Public Use
  Company Number: EG-NOVARTISPH-NVSC2022EG017168

PATIENT
  Age: 53 Year
  Sex: Female

DRUGS (8)
  1. KISQALI [Suspect]
     Active Substance: RIBOCICLIB
     Indication: Metastases to bone
     Dosage: 200 MG, QD (THREE TABLETS AT ONCE DAILY FOR 21 DAYS THEN A FREE WEEK OF MEDICATION)
     Route: 065
     Dates: start: 20200705
  2. KISQALI [Suspect]
     Active Substance: RIBOCICLIB
     Dosage: 200 MG (FROM 3 TABLETS DAILY TO KISQALI 2  TABLETS DAILY) (START DATE: 3 YEARS AGO)
     Route: 048
  3. FEMARA [Concomitant]
     Active Substance: LETROZOLE
     Indication: Breast cancer
     Dosage: UNK, QD (ONE TABLET DAILY)
     Route: 065
     Dates: start: 20200705
  4. VITAMINS NOS [Concomitant]
     Active Substance: VITAMINS
     Indication: Product used for unknown indication
     Dosage: UNK, QD (ONE TYPE OF EACH VITAMIN DAILY)
     Route: 065
  5. RIVAROSPIRE [Concomitant]
     Indication: Anticoagulant therapy
     Dosage: 20 MG, QD
     Route: 048
  6. CORDARONE [Concomitant]
     Active Substance: AMIODARONE HYDROCHLORIDE
     Indication: Arrhythmia
     Dosage: 200 MG, QD
     Route: 048
  7. NOVOGENT [Concomitant]
     Indication: Immune system disorder
     Dosage: UNK (WHEN NEEDED UPON HER HCP^S DECISION)
     Route: 065
     Dates: start: 202011, end: 202101
  8. PANADOL [Concomitant]
     Active Substance: ACETAMINOPHEN
     Indication: Analgesic therapy
     Dosage: UNK
     Route: 065

REACTIONS (27)
  - Heart rate abnormal [Recovered/Resolved]
  - Hypothyroidism [Unknown]
  - Pneumonia [Recovering/Resolving]
  - Gait disturbance [Not Recovered/Not Resolved]
  - Blood cholesterol increased [Unknown]
  - Nutritional condition abnormal [Unknown]
  - Pallor [Not Recovered/Not Resolved]
  - Immune system disorder [Recovering/Resolving]
  - Renal function test abnormal [Recovering/Resolving]
  - Hepatic enzyme abnormal [Recovering/Resolving]
  - Red blood cell count abnormal [Unknown]
  - White blood cell count abnormal [Unknown]
  - Dyspnoea [Not Recovered/Not Resolved]
  - Decreased appetite [Unknown]
  - Haemoglobin decreased [Unknown]
  - Cough [Recovering/Resolving]
  - Fatigue [Unknown]
  - Cardiac disorder [Not Recovered/Not Resolved]
  - Muscular weakness [Not Recovered/Not Resolved]
  - Illness [Unknown]
  - Pain [Not Recovered/Not Resolved]
  - Platelet count decreased [Unknown]
  - Thyroid disorder [Unknown]
  - Lethargy [Not Recovered/Not Resolved]
  - Neutrophil count decreased [Unknown]
  - Anaemia [Unknown]
  - Speech disorder [Unknown]

NARRATIVE: CASE EVENT DATE: 20200701
